FAERS Safety Report 9642533 (Version 1)
Quarter: 2013Q4

REPORT INFORMATION
  Report Type: Report from Study
  Country: CA (occurrence: CA)
  Receive Date: 20131024
  Receipt Date: 20131024
  Transmission Date: 20140711
  Serious: Yes (Other)
  Sender: FDA-Public Use
  Company Number: CA-ROCHE-1292852

PATIENT
  Sex: Female
  Weight: 53.5 kg

DRUGS (13)
  1. RITUXAN [Suspect]
     Indication: RHEUMATOID ARTHRITIS
     Route: 042
     Dates: start: 20110610
  2. DIPHENHYDRAMINE HCL [Concomitant]
     Indication: PREMEDICATION
     Route: 048
     Dates: start: 20110610
  3. ACETAMINOPHEN [Concomitant]
     Indication: PREMEDICATION
     Route: 048
     Dates: start: 20110610
  4. METHYLPREDNISOLONE [Concomitant]
     Indication: PREMEDICATION
     Route: 042
     Dates: start: 20110610
  5. RAMIPRIL [Concomitant]
  6. LIPITOR [Concomitant]
  7. ADALAT [Concomitant]
  8. LOSEC (CANADA) [Concomitant]
  9. ASPIRIN [Concomitant]
     Route: 065
  10. METHOTREXATE [Concomitant]
     Route: 048
  11. FOLIC ACID [Concomitant]
  12. ELTROXIN [Concomitant]
  13. KETOROLAC [Concomitant]

REACTIONS (3)
  - Foot deformity [Unknown]
  - Weight decreased [Not Recovered/Not Resolved]
  - Localised infection [Recovered/Resolved]
